FAERS Safety Report 26080193 (Version 1)
Quarter: 2025Q4

REPORT INFORMATION
  Report Type: Spontaneous
  Country: TW (occurrence: TW)
  Receive Date: 20251124
  Receipt Date: 20251124
  Transmission Date: 20260118
  Serious: Yes (Other)
  Sender: UCB
  Company Number: TW-GSK-TW2025APC146865

PATIENT
  Age: 78 Year
  Weight: 51 kg

DRUGS (13)
  1. KEPPRA [Suspect]
     Active Substance: LEVETIRACETAM
     Indication: Seizure
     Dosage: 1000 MG, QD
  2. KEPPRA [Suspect]
     Active Substance: LEVETIRACETAM
     Dosage: 1000 MG, BID (Q12H)
  3. KEPPRA [Suspect]
     Active Substance: LEVETIRACETAM
     Dosage: 1000 MG, BID (Q12H)
  4. KEPPRA [Suspect]
     Active Substance: LEVETIRACETAM
     Indication: Seizure
     Dosage: 1000 MG, BID
  5. KEPPRA [Suspect]
     Active Substance: LEVETIRACETAM
     Dosage: 1000 MG, QD
  6. FAMOTIDINE [Suspect]
     Active Substance: FAMOTIDINE
     Indication: Prophylaxis
     Dosage: UNK, QD (20 MG/TAB 0.5# QOD)
  7. METOCLOPRAMIDE HYDROCHLORIDE [Suspect]
     Active Substance: METOCLOPRAMIDE HYDROCHLORIDE
     Indication: Vomiting
     Dosage: 3.84 MG, EVERY 0.5 DAY ONCE
  8. BISOLVON [Concomitant]
     Active Substance: BROMHEXINE HYDROCHLORIDE
     Indication: Productive cough
     Dosage: 2 ML, EACH 0.25 DAY ONCE
  9. Actein [Concomitant]
     Indication: Productive cough
     Dosage: 600 MG, EVERY 0.5 DAY ONCE
  10. LIQUID P+B [Concomitant]
     Indication: Vitamin supplementation
     Dosage: UNK, QD, 2.0[DRP], 400.0 10*6.[I U]
  11. Sideral [Concomitant]
     Indication: Mineral supplementation
     Dosage: 30 MG, QD, 30 CAPSULES/BOX
  12. LANSOPRAZOLE [Concomitant]
     Active Substance: LANSOPRAZOLE
     Indication: Abdominal discomfort
     Dosage: 30 MG, QD
  13. IMOL [Concomitant]
     Indication: Diarrhoea
     Dosage: 2 MG, QD

REACTIONS (5)
  - Hepatitis acute [Unknown]
  - Drug-induced liver injury [Unknown]
  - Cold sweat [Unknown]
  - Flushing [Unknown]
  - Inappropriate schedule of product administration [Unknown]
